FAERS Safety Report 5059336-6 (Version None)
Quarter: 2006Q3

REPORT INFORMATION
  Report Type: 
  Country: None (occurrence: None)
  Receive Date: 20060718
  Receipt Date: 20060706
  Transmission Date: 20061208
  Serious: Yes (Hospitalization)
  Sender: FDA-Public Use
  Company Number: 2006084860

PATIENT
  Age: 73 Year
  Sex: Female

DRUGS (5)
  1. IRINOTECAN HCL [Suspect]
     Indication: PANCREATIC CARCINOMA
     Dosage: 180 MG/M*2 (DAILY), INTRAVENOUS
     Route: 042
     Dates: start: 20060221, end: 20060307
  2. FLUOROURACIL [Suspect]
     Indication: PANCREATIC CARCINOMA
     Dosage: 400 MG/M*2 (DAILY) INTRAVENOUS
     Route: 042
     Dates: start: 20060221, end: 20060307
  3. OXALIPLATIN (OXALIPLATIN) [Suspect]
     Indication: PANCREATIC CARCINOMA
     Dosage: 85 MG/M*2 (DAILY) INTRAVENOUS
     Route: 042
     Dates: start: 20060221, end: 20060307
  4. METHYLPREDNISOLONE SODIUM SUCCINATE [Suspect]
     Indication: PANCREATIC CARCINOMA
     Dosage: INTRAVENOUS
     Route: 042
     Dates: start: 20060221, end: 20060307
  5. ATROPINE [Concomitant]

REACTIONS (1)
  - HAEMOLYTIC ANAEMIA [None]
